FAERS Safety Report 7523149-3 (Version None)
Quarter: 2011Q2

REPORT INFORMATION
  Report Type: 
  Country: None (occurrence: None)
  Receive Date: 20110603
  Receipt Date: 20081208
  Transmission Date: 20111010
  Serious: Yes (Death, Other)
  Sender: FDA-Public Use
  Company Number: ES-CUBIST-2010S1000744

PATIENT
  Age: 56 Year
  Sex: Male
  Weight: 100 kg

DRUGS (2)
  1. CUBICIN [Suspect]
     Route: 042
     Dates: start: 20080228, end: 20080313
  2. CUBICIN [Suspect]
     Indication: ENDOCARDITIS
     Route: 042
     Dates: start: 20080228, end: 20080313

REACTIONS (3)
  - RENAL FAILURE ACUTE [None]
  - INTESTINAL ISCHAEMIA [None]
  - DISEASE PROGRESSION [None]
